FAERS Safety Report 10661166 (Version 1)
Quarter: 2014Q4

REPORT INFORMATION
  Report Type: Spontaneous
  Country: GB (occurrence: None)
  Receive Date: 20141216
  Receipt Date: 20141216
  Transmission Date: 20150529
  Serious: Yes (Death, Other)
  Sender: FDA-Public Use
  Company Number: FK201406192

PATIENT
  Age: 82 Year
  Sex: Female
  Weight: 63.7 kg

DRUGS (5)
  1. ALENDRONIC ACID (ALENDRONIC ACID) [Concomitant]
     Active Substance: ALENDRONIC ACID
  2. COLECALCIFEROL (COLECALCIFEROL) [Concomitant]
  3. LISINOPRIL (LISINOPRIL) [Concomitant]
     Active Substance: LISINOPRIL
  4. AMLODIPINE [Concomitant]
     Active Substance: AMLODIPINE BESYLATE
  5. CARBOPLATIN (MANUFACTURER UNKNOWN) (CARBOPLATIN) (CARBOPLATIN) [Suspect]
     Active Substance: CARBOPLATIN
     Indication: OVARIAN CANCER
     Route: 042
     Dates: start: 20141009

REACTIONS (20)
  - Bundle branch block left [None]
  - Diarrhoea [None]
  - Cardiac murmur [None]
  - Anaemia [None]
  - Dizziness [None]
  - Nausea [None]
  - Pulmonary oedema [None]
  - Heart valve incompetence [None]
  - Acute kidney injury [None]
  - Tachycardia [None]
  - Aortic stenosis [None]
  - Cardiac disorder [None]
  - Fatigue [None]
  - Myocardial infarction [None]
  - Toxicity to various agents [None]
  - Dehydration [None]
  - Cardiac failure [None]
  - Chest discomfort [None]
  - Dyspnoea [None]
  - No therapeutic response [None]
